FAERS Safety Report 6435793-5 (Version None)
Quarter: 2009Q4

REPORT INFORMATION
  Report Type: 
  Country: None (occurrence: None)
  Receive Date: 20091111
  Receipt Date: 20091105
  Transmission Date: 20100525
  Serious: Yes (Hospitalization)
  Sender: FDA-Public Use
  Company Number: BE-BRISTOL-MYERS SQUIBB COMPANY-14787089

PATIENT
  Age: 69 Year
  Sex: Male
  Weight: 75 kg

DRUGS (10)
  1. TAXOL [Suspect]
     Indication: NON-SMALL CELL LUNG CANCER
     Route: 042
     Dates: start: 20090902
  2. CARBOPLATIN [Suspect]
     Indication: NON-SMALL CELL LUNG CANCER
     Route: 042
     Dates: start: 20090902
  3. TRANSTEC [Concomitant]
  4. OMEPRAZOLE [Concomitant]
  5. DICLOFENAC [Concomitant]
  6. DAFALGAN [Concomitant]
  7. NOVABAN [Concomitant]
  8. ZOMETA [Concomitant]
  9. LITICAN [Concomitant]
  10. MORPHINE SULFATE [Concomitant]

REACTIONS (4)
  - BLOOD ALKALINE PHOSPHATASE INCREASED [None]
  - C-REACTIVE PROTEIN INCREASED [None]
  - FEBRILE NEUTROPENIA [None]
  - RETICULOCYTE COUNT INCREASED [None]
